FAERS Safety Report 10500910 (Version 23)
Quarter: 2018Q1

REPORT INFORMATION
  Report Type: Report from Study
  Country: CA (occurrence: CA)
  Receive Date: 20141007
  Receipt Date: 20180101
  Transmission Date: 20180508
  Serious: Yes (Other)
  Sender: FDA-Public Use
  Company Number: CA-ROCHE-1237139

PATIENT
  Age: 57 Year
  Sex: Female
  Weight: 73 kg

DRUGS (23)
  1. ACTEMRA [Suspect]
     Active Substance: TOCILIZUMAB
     Dosage: ON HOLD
     Route: 042
     Dates: start: 20151126
  2. TRAZODONE [Concomitant]
     Active Substance: TRAZODONE HYDROCHLORIDE
  3. ACTEMRA [Suspect]
     Active Substance: TOCILIZUMAB
     Route: 042
     Dates: start: 20151102
  4. ACTEMRA [Suspect]
     Active Substance: TOCILIZUMAB
     Route: 042
     Dates: start: 20160425
  5. IMURAN [Concomitant]
     Active Substance: AZATHIOPRINE
  6. ADVAIR HFA [Concomitant]
     Active Substance: FLUTICASONE PROPIONATE\SALMETEROL XINAFOATE
     Route: 065
     Dates: start: 201406
  7. ACTEMRA [Suspect]
     Active Substance: TOCILIZUMAB
     Indication: RHEUMATOID ARTHRITIS
     Route: 042
     Dates: start: 20130515
  8. ACTEMRA [Suspect]
     Active Substance: TOCILIZUMAB
     Route: 042
     Dates: start: 20151001
  9. VENTOLIN [Concomitant]
     Active Substance: ALBUTEROL SULFATE
  10. PANTOLOC [Concomitant]
     Active Substance: PANTOPRAZOLE SODIUM
  11. NAPROXEN. [Concomitant]
     Active Substance: NAPROXEN
  12. ALVESCO [Concomitant]
     Active Substance: CICLESONIDE
     Route: 065
     Dates: start: 201406
  13. ACTEMRA [Suspect]
     Active Substance: TOCILIZUMAB
     Route: 042
     Dates: start: 20171124
  14. PAXIL (CANADA) [Concomitant]
  15. DIOVAN HCT [Concomitant]
     Active Substance: HYDROCHLOROTHIAZIDE\VALSARTAN
  16. CLONAZEPAM. [Concomitant]
     Active Substance: CLONAZEPAM
  17. ALENDRONAT [Concomitant]
     Active Substance: ALENDRONATE SODIUM
  18. DOMPERIDONE [Concomitant]
     Active Substance: DOMPERIDONE
  19. ZOPICLONE [Concomitant]
     Active Substance: ZOPICLONE
  20. QUININE [Concomitant]
     Active Substance: QUININE
  21. PREDNISONE. [Concomitant]
     Active Substance: PREDNISONE
  22. SINGULAIR [Concomitant]
     Active Substance: MONTELUKAST SODIUM
  23. ATROVENT [Concomitant]
     Active Substance: IPRATROPIUM BROMIDE
     Route: 065
     Dates: start: 201406

REACTIONS (22)
  - Influenza [Recovering/Resolving]
  - Asthma [Not Recovered/Not Resolved]
  - Lung infection [Unknown]
  - Bronchitis [Recovered/Resolved]
  - Infection [Unknown]
  - Blood pressure increased [Unknown]
  - Asthma [Unknown]
  - Headache [Recovered/Resolved]
  - Blood pressure increased [Unknown]
  - Alanine aminotransferase increased [Unknown]
  - Acne [Recovered/Resolved]
  - Secretion discharge [Recovered/Resolved]
  - Cellulitis [Recovered/Resolved]
  - Hypertension [Unknown]
  - Cough [Unknown]
  - Weight decreased [Unknown]
  - Blood pressure diastolic abnormal [Unknown]
  - Gastrooesophageal reflux disease [Not Recovered/Not Resolved]
  - Arthropod bite [Recovered/Resolved]
  - Arthralgia [Unknown]
  - Asthma [Recovered/Resolved]
  - Nasopharyngitis [Unknown]

NARRATIVE: CASE EVENT DATE: 20130607
